FAERS Safety Report 9646139 (Version 4)
Quarter: 2014Q1

REPORT INFORMATION
  Report Type: Spontaneous
  Country: US (occurrence: US)
  Receive Date: 20131025
  Receipt Date: 20140105
  Transmission Date: 20141002
  Serious: Yes (Other)
  Sender: FDA-Public Use
  Company Number: US-PFIZER INC-2013305842

PATIENT
  Age: 76 Year
  Sex: Female
  Weight: 87.53 kg

DRUGS (3)
  1. LYRICA [Suspect]
     Dosage: 75 MG, 2X/DAY
     Route: 048
  2. XALATAN [Suspect]
     Indication: GLAUCOMA
     Dosage: UNK, 1X/DAY
  3. PROTONIX [Suspect]
     Indication: GASTROOESOPHAGEAL REFLUX DISEASE
     Dosage: 40 MG, 1X/DAY

REACTIONS (6)
  - Pancreatic carcinoma [Unknown]
  - Lung neoplasm malignant [Unknown]
  - Thyroid cancer [Unknown]
  - Neoplasm malignant [Unknown]
  - Hypoacusis [Unknown]
  - Blood test abnormal [Unknown]
